FAERS Safety Report 6652015-0 (Version None)
Quarter: 2010Q1

REPORT INFORMATION
  Report Type: 
  Country: None (occurrence: None)
  Receive Date: 20100325
  Receipt Date: 20100319
  Transmission Date: 20100710
  Serious: Yes (Death)
  Sender: FDA-Public Use
  Company Number: US-GILEAD-2010-0027973

PATIENT
  Sex: Female

DRUGS (17)
  1. LETAIRIS [Suspect]
     Indication: PULMONARY ARTERIAL HYPERTENSION
     Route: 048
     Dates: start: 20080209
  2. COUMADIN [Concomitant]
  3. NORVASC [Concomitant]
  4. FLUDROCORT [Concomitant]
  5. CORTEF [Concomitant]
  6. HUMALOG [Concomitant]
  7. LANTUS [Concomitant]
  8. ZOLOFT [Concomitant]
  9. OMEPRAZOLE [Concomitant]
  10. LUNESTA [Concomitant]
  11. LEVOTHYROXINE SODIUM [Concomitant]
  12. LYRICA [Concomitant]
  13. CALTRATE +D [Concomitant]
  14. MULTI-VITAMIN [Concomitant]
  15. VITAMIN B COMPLEX CAP [Concomitant]
  16. VITAMIN D [Concomitant]
  17. VITAMIN E [Concomitant]

REACTIONS (1)
  - DEATH [None]
